FAERS Safety Report 5243777-8 (Version None)
Quarter: 2007Q1

REPORT INFORMATION
  Report Type: 
  Country: None (occurrence: None)
  Receive Date: 20070220
  Receipt Date: 20070220
  Transmission Date: 20070707
  Serious: Yes (Other)
  Sender: FDA-Public Use
  Company Number: None

PATIENT
  Age: 43 Year
  Sex: Male
  Weight: 110.2241 kg

DRUGS (2)
  1. VICKS NYQUIL MULTI-SYMPTOM COLD/FLU -CHERRY FLAVOR- [Suspect]
     Indication: INFLUENZA
     Dosage: 30ML PO
     Route: 048
     Dates: start: 20070215, end: 20070215
  2. . [Concomitant]

REACTIONS (7)
  - ABDOMINAL PAIN UPPER [None]
  - DIZZINESS [None]
  - FATIGUE [None]
  - HEART RATE INCREASED [None]
  - LOSS OF CONSCIOUSNESS [None]
  - MALAISE [None]
  - SOMNOLENCE [None]
